FAERS Safety Report 24084294 (Version 2)
Quarter: 2024Q3

REPORT INFORMATION
  Report Type: Spontaneous
  Country: CA (occurrence: CA)
  Receive Date: 20240712
  Receipt Date: 20240716
  Transmission Date: 20241017
  Serious: No
  Sender: CSL BEHRING
  Company Number: CA-BEH-2024175129

PATIENT
  Age: 64 Year
  Sex: Male
  Weight: 84 kg

DRUGS (1)
  1. PRIVIGEN [Suspect]
     Active Substance: HUMAN IMMUNOGLOBULIN G
     Dosage: 400 ML, 3 HOURS
     Route: 042

REACTIONS (5)
  - Eosinophilia [Recovering/Resolving]
  - Drug eruption [Recovering/Resolving]
  - Eczema [Recovering/Resolving]
  - Erythema [Recovering/Resolving]
  - Transfusion reaction [Recovering/Resolving]
